FAERS Safety Report 5939440-8 (Version None)
Quarter: 2008Q4

REPORT INFORMATION
  Report Type: 
  Country: None (occurrence: None)
  Receive Date: 20081029
  Receipt Date: 20081007
  Transmission Date: 20090506
  Serious: Yes (Other)
  Sender: FDA-Public Use
  Company Number: 08H-122-0315102-00

PATIENT
  Age: 35 Year
  Sex: Female

DRUGS (2)
  1. PENTOTHAL [Suspect]
     Indication: DRUG USE FOR UNKNOWN INDICATION
  2. SUXAMETHONIUM [Suspect]
     Indication: DRUG USE FOR UNKNOWN INDICATION

REACTIONS (5)
  - ANAPHYLACTIC REACTION [None]
  - BLOOD PRESSURE DECREASED [None]
  - BRONCHIAL OBSTRUCTION [None]
  - GENERALISED ERYTHEMA [None]
  - OXYGEN SATURATION DECREASED [None]
